FAERS Safety Report 19561784 (Version 1)
Quarter: 2021Q3

REPORT INFORMATION
  Report Type: Spontaneous
  Country: RU (occurrence: RU)
  Receive Date: 20210714
  Receipt Date: 20210714
  Transmission Date: 20211014
  Serious: Yes (Hospitalization, Disabling, Other)
  Sender: FDA-Public Use
  Company Number: RU-JNJFOC-20210711201

PATIENT
  Age: 42 Year
  Sex: Male
  Weight: 88 kg

DRUGS (17)
  1. SIRTURO [Suspect]
     Active Substance: BEDAQUILINE FUMARATE
     Dosage: 400 UNITS NOT REPORTED
     Route: 048
     Dates: start: 20210531, end: 20210612
  2. LINEZOLIDE [Suspect]
     Active Substance: LINEZOLID
     Indication: TUBERCULOSIS
     Dosage: 600 UNITS NOT REPORTED
     Route: 048
     Dates: start: 20210519, end: 20210529
  3. CLOFAZIMINE [Suspect]
     Active Substance: CLOFAZIMINE
     Indication: TUBERCULOSIS
     Dosage: 100 UNITS NOT REPORTED
     Route: 048
     Dates: start: 20210519, end: 20210529
  4. LEVOFLOXACIN. [Suspect]
     Active Substance: LEVOFLOXACIN
     Dosage: 500 UNITS NOT REPORTED
     Route: 065
     Dates: start: 20210623, end: 20210624
  5. VITAMINE C [Concomitant]
     Active Substance: ASCORBIC ACID
     Indication: PRODUCT USED FOR UNKNOWN INDICATION
     Route: 065
     Dates: start: 20210625, end: 20210627
  6. LEVOFLOXACIN. [Suspect]
     Active Substance: LEVOFLOXACIN
     Dosage: 250 UNITS NOT REPORTED
     Route: 065
     Dates: start: 20210622
  7. LINEZOLIDE [Suspect]
     Active Substance: LINEZOLID
     Dosage: 600 UNITS NOT REPORTED
     Route: 065
     Dates: start: 20210622, end: 20210624
  8. HEPTOR [Concomitant]
     Indication: PROPHYLAXIS
     Dosage: 400 MR
     Route: 042
     Dates: end: 20210627
  9. SIRTURO [Suspect]
     Active Substance: BEDAQUILINE FUMARATE
     Indication: TUBERCULOSIS
     Dosage: 400 UNITS NOT REPORTED
     Route: 048
     Dates: start: 20210519, end: 20210529
  10. CLOFAZIMINE [Suspect]
     Active Substance: CLOFAZIMINE
     Dosage: 100 UNITS NOT REPORTED
     Route: 065
     Dates: start: 20210531, end: 20210612
  11. CLOFAZIMINE [Suspect]
     Active Substance: CLOFAZIMINE
     Dosage: 100 UNITS NOT REPORTED
     Route: 065
     Dates: start: 20210622, end: 20210624
  12. VITAMIN B6 [Concomitant]
     Active Substance: PYRIDOXINE HYDROCHLORIDE
     Indication: PROPHYLAXIS
     Dosage: 100 MG QOD
     Route: 048
     Dates: start: 20210621
  13. HEPTRAL [ADEMETIONINE] [Concomitant]
     Indication: PROPHYLAXIS
     Dosage: 400 MR
     Route: 042
     Dates: start: 20210628, end: 20210702
  14. LEVOFLOXACIN. [Suspect]
     Active Substance: LEVOFLOXACIN
     Indication: TUBERCULOSIS
     Dosage: 1000 UNITS NOT REPORTED
     Route: 048
     Dates: start: 20210519, end: 20210529
  15. LINEZOLIDE [Suspect]
     Active Substance: LINEZOLID
     Dosage: 600 UNITS NOT REPORTED
     Route: 065
     Dates: start: 20210531, end: 20210612
  16. NACL [Concomitant]
     Active Substance: SODIUM CHLORIDE
     Indication: PRODUCT USED FOR UNKNOWN INDICATION
     Dosage: NACL 0.9% ?200.0
     Route: 065
     Dates: start: 20210625, end: 20210627
  17. SIRTURO [Suspect]
     Active Substance: BEDAQUILINE FUMARATE
     Dosage: 400 UNITS NOT REPORTED
     Route: 048
     Dates: start: 20210622, end: 20210624

REACTIONS (6)
  - Alcohol abuse [Unknown]
  - Arthralgia [Recovered/Resolved]
  - Alanine aminotransferase increased [Recovering/Resolving]
  - Blood uric acid increased [Unknown]
  - Treatment noncompliance [Unknown]
  - Aspartate aminotransferase increased [Recovering/Resolving]

NARRATIVE: CASE EVENT DATE: 2021
